FAERS Safety Report 4330741-6 (Version None)
Quarter: 2004Q1

REPORT INFORMATION
  Report Type: 
  Country: None (occurrence: None)
  Receive Date: 20040331
  Receipt Date: 20040316
  Transmission Date: 20041129
  Serious: Yes (Death, Hospitalization)
  Sender: FDA-Public Use
  Company Number: A02200400376

PATIENT
  Age: 1 Day
  Sex: Male

DRUGS (7)
  1. STILNOX - (ZOLPIDEM) - TABLET - 10 MG [Suspect]
     Dosage: TRANSPLACENTAL
     Route: 064
     Dates: end: 20040107
  2. LEXOMIL - (BROMAZEPAM) - TABLET - 6 MG [Suspect]
     Dosage: TRANSPLACENTAL
     Route: 064
     Dates: end: 20040107
  3. RETROVIR - (ZIDOVUDINE) - SOLUTION - 200 MG / SOLUTION - 200 MG [Suspect]
     Dosage: 2DF QD, TRANSPLACENTAL/INTRAVENOUS
     Dates: start: 20040801, end: 20040106
  4. RETROVIR - (ZIDOVUDINE) - SOLUTION - 200 MG / SOLUTION - 200 MG [Suspect]
     Dosage: 2DF QD, TRANSPLACENTAL/INTRAVENOUS
     Dates: start: 20040107, end: 20040113
  5. COMBIVIR [Suspect]
     Dosage: 2 DF QD, TRANSPLACENTAL
     Route: 062
     Dates: start: 20030806, end: 20040107
  6. KALETRA [Suspect]
     Dosage: 3 DF QD, TRANSPLACENTAL
     Route: 064
  7. SUBUTEX [Concomitant]

REACTIONS (24)
  - ANURIA [None]
  - ATRIOVENTRICULAR CANAL [None]
  - BLOOD CREATININE INCREASED [None]
  - CAESAREAN SECTION [None]
  - CARDIAC FAILURE [None]
  - COAGULOPATHY [None]
  - CYTOLYTIC HEPATITIS [None]
  - ELECTROENCEPHALOGRAM ABNORMAL [None]
  - FACTOR II DEFICIENCY [None]
  - FOETAL HEART RATE DECELERATION [None]
  - HYPOGLYCAEMIA [None]
  - HYPONATRAEMIA [None]
  - HYPOXIA [None]
  - LACTIC ACIDOSIS [None]
  - MATERNAL DRUGS AFFECTING FOETUS [None]
  - MECONIUM IN AMNIOTIC FLUID [None]
  - MYELODYSPLASTIC SYNDROME [None]
  - NEONATAL DISORDER [None]
  - RENAL FAILURE [None]
  - THROMBOCYTOPENIA [None]
  - TRISOMY 21 [None]
  - ULTRASOUND KIDNEY ABNORMAL [None]
  - ULTRASOUND SKULL ABNORMAL [None]
  - VENA CAVA THROMBOSIS [None]
